FAERS Safety Report 25300682 (Version 2)
Quarter: 2025Q2

REPORT INFORMATION
  Report Type: Spontaneous
  Country: US (occurrence: US)
  Receive Date: 20250512
  Receipt Date: 20250606
  Transmission Date: 20250716
  Serious: Yes (Other)
  Sender: AKEBIA THERAPEUTICS
  Company Number: US-AKEBIA THERAPEUTICS, INC.-US-AKEB-25-000244

PATIENT
  Sex: Male

DRUGS (3)
  1. VADADUSTAT [Suspect]
     Active Substance: VADADUSTAT
     Indication: Product used for unknown indication
     Dosage: 150 UNK, BID
     Route: 065
  2. VADADUSTAT [Suspect]
     Active Substance: VADADUSTAT
     Dosage: 150 UNK, QD
     Route: 065
  3. MIRCERA [Concomitant]
     Active Substance: METHOXY POLYETHYLENE GLYCOL-EPOETIN BETA
     Indication: Product used for unknown indication
     Route: 065

REACTIONS (2)
  - Enteritis [Recovered/Resolved]
  - Abdominal pain [Recovered/Resolved]
